FAERS Safety Report 13382031 (Version 1)
Quarter: 2017Q1

REPORT INFORMATION
  Report Type: Spontaneous
  Country: US (occurrence: US)
  Receive Date: 20170329
  Receipt Date: 20170329
  Transmission Date: 20170429
  Serious: Yes (Hospitalization)
  Sender: FDA-Public Use
  Company Number: PHHY2017US044136

PATIENT
  Age: 15 Year
  Sex: Female

DRUGS (3)
  1. SERTRALINE [Concomitant]
     Active Substance: SERTRALINE HYDROCHLORIDE
     Indication: TOXICITY TO VARIOUS AGENTS
     Dosage: 15 DF, UNK
     Route: 065
  2. LORATADINE. [Concomitant]
     Active Substance: LORATADINE
     Indication: TOXICITY TO VARIOUS AGENTS
     Route: 065
  3. AMPHETAMINE+DEXTROAMPHETAMINE [Suspect]
     Active Substance: AMPHETAMINE ADIPATE\DEXTROAMPHETAMINE
     Indication: TOXICITY TO VARIOUS AGENTS
     Dosage: 6 DF, UNK
     Route: 065

REACTIONS (3)
  - Overdose [Unknown]
  - Suicide attempt [Unknown]
  - Cardiomyopathy [Recovered/Resolved]
